FAERS Safety Report 23813346 (Version 2)
Quarter: 2024Q3

REPORT INFORMATION
  Report Type: Spontaneous
  Country: JP (occurrence: JP)
  Receive Date: 20240503
  Receipt Date: 20240809
  Transmission Date: 20241017
  Serious: Yes (Hospitalization, Other)
  Sender: STRIDES
  Company Number: None

PATIENT
  Age: 9 Year
  Sex: Female

DRUGS (4)
  1. NAPROXEN [Suspect]
     Active Substance: NAPROXEN
     Indication: Arthralgia
     Dosage: UNK, INITIAL DOSE
     Route: 065
  2. NAPROXEN [Suspect]
     Active Substance: NAPROXEN
     Indication: Osteomyelitis chronic
     Dosage: 150 MILLIGRAM, QD
     Route: 065
  3. NAPROXEN [Suspect]
     Active Substance: NAPROXEN
     Indication: Osteitis
  4. NAPROXEN [Suspect]
     Active Substance: NAPROXEN
     Indication: Erythema nodosum

REACTIONS (4)
  - Drug-induced liver injury [Recovered/Resolved]
  - Condition aggravated [Unknown]
  - Treatment failure [Unknown]
  - Off label use [Unknown]
